FAERS Safety Report 21312066 (Version 1)
Quarter: 2022Q3

REPORT INFORMATION
  Report Type: Spontaneous
  Country: US (occurrence: None)
  Receive Date: 20220909
  Receipt Date: 20220909
  Transmission Date: 20221027
  Serious: No
  Sender: FDA-Public Use
  Company Number: US-ARIS GLOBAL-202204-0620

PATIENT
  Age: 76 Year
  Sex: Female

DRUGS (8)
  1. OXERVATE [Suspect]
     Active Substance: CENEGERMIN-BKBJ
     Indication: Neurotrophic keratopathy
     Route: 047
     Dates: start: 20220322, end: 20220519
  2. OXERVATE [Suspect]
     Active Substance: CENEGERMIN-BKBJ
     Route: 047
  3. SERTRALINE HYDROCHLORIDE [Concomitant]
     Active Substance: SERTRALINE HYDROCHLORIDE
  4. ASPIRIN [Concomitant]
     Active Substance: ASPIRIN
  5. ACYCLOVIR [Concomitant]
     Active Substance: ACYCLOVIR
  6. BUPROPION [Concomitant]
     Active Substance: BUPROPION
  7. VITAMIN D3 [Concomitant]
     Active Substance: CHOLECALCIFEROL
  8. MELATONIN [Concomitant]
     Active Substance: MELATONIN

REACTIONS (6)
  - Eye irritation [Unknown]
  - Eye pain [Unknown]
  - Lacrimation increased [Unknown]
  - Asthenopia [Unknown]
  - Off label use [Unknown]
  - Eyelid pain [Unknown]

NARRATIVE: CASE EVENT DATE: 20220406
